FAERS Safety Report 5860115-8 (Version None)
Quarter: 2008Q3

REPORT INFORMATION
  Report Type: 
  Country: None (occurrence: None)
  Receive Date: 20080827
  Receipt Date: 20080815
  Transmission Date: 20090109
  Serious: Yes (Other)
  Sender: FDA-Public Use
  Company Number: SE-PFIZER INC-2008068628

PATIENT
  Sex: Male
  Weight: 96 kg

DRUGS (5)
  1. GENOTROPIN [Suspect]
     Indication: HYPOPITUITARISM
     Dosage: DAILY DOSE:.3MG-FREQ:DAILY
     Dates: start: 19940830, end: 20080812
  2. HYDROCORTISONE 10MG TAB [Concomitant]
     Indication: BLOOD CORTISOL DECREASED
     Dosage: DAILY DOSE:20MG
  3. LEVOTHYROXINE SODIUM [Concomitant]
     Indication: HYPOTHYROIDISM
     Dosage: DAILY DOSE:.15MG
  4. TESTOSTERONE [Concomitant]
     Indication: HYPOGONADISM
     Dosage: DAILY DOSE:50MG
     Dates: start: 20060201, end: 20080812
  5. MECILLINAM [Concomitant]

REACTIONS (1)
  - PROSTATE CANCER [None]
